FAERS Safety Report 14693703 (Version 3)
Quarter: 2018Q2

REPORT INFORMATION
  Report Type: Spontaneous
  Country: JP (occurrence: JP)
  Receive Date: 20180329
  Receipt Date: 20180622
  Transmission Date: 20180711
  Serious: Yes (Hospitalization, Other)
  Sender: FDA-Public Use
  Company Number: JP-009507513-1803JPN002714J

PATIENT
  Age: 72 Year
  Sex: Female
  Weight: 58 kg

DRUGS (12)
  1. NEXIUM [Concomitant]
     Active Substance: ESOMEPRAZOLE MAGNESIUM
     Dosage: 20 MG, QD
     Route: 048
     Dates: start: 20170824, end: 20180529
  2. ISCOTIN [Concomitant]
     Active Substance: ISONIAZID
     Dosage: 200 MG, QD
     Route: 048
     Dates: start: 20170824, end: 20180529
  3. VESTURIT [Concomitant]
     Dosage: 200 MG, QD
     Route: 048
     Dates: start: 20170824
  4. PURSENNID [Concomitant]
     Active Substance: SENNOSIDES A AND B
     Dosage: 24 MG, QD
  5. KEYTRUDA [Suspect]
     Active Substance: PEMBROLIZUMAB
     Indication: NON-SMALL CELL LUNG CANCER
     Dosage: 200 MG, Q3W
     Route: 041
     Dates: start: 20170824, end: 20171121
  6. MOHRUS TAPE L [Concomitant]
     Active Substance: KETOPROFEN
     Dosage: 1 DF, PRN
     Route: 065
  7. KEYTRUDA [Suspect]
     Active Substance: PEMBROLIZUMAB
     Dosage: 200 MG, Q3W
     Route: 041
     Dates: start: 20180123, end: 20180123
  8. PROGRAF [Concomitant]
     Active Substance: TACROLIMUS\TACROLIMUS ANHYDROUS
     Dosage: 1 MG, QD
     Route: 048
     Dates: start: 20170824, end: 20180529
  9. PYDOXAL [Concomitant]
     Active Substance: PYRIDOXAL
     Dosage: 10 MG, QD
     Route: 048
     Dates: start: 20170824, end: 20180529
  10. LIMAPROST ALFADEX [Concomitant]
     Active Substance: LIMAPROST
     Dosage: 10 MICRO-L/ML, QD
     Route: 048
  11. BONOTEO [Concomitant]
     Active Substance: MINODRONIC ACID
     Dosage: 50 MG, QM
     Route: 048
     Dates: start: 20170824, end: 20180529
  12. PREDONINE [Concomitant]
     Active Substance: PREDNISOLONE
     Dosage: 5 MG, QD
     Route: 048
     Dates: start: 20170824, end: 20180529

REACTIONS (6)
  - Central nervous system lupus [Recovering/Resolving]
  - Breast cancer [Unknown]
  - Encephalitis autoimmune [Recovering/Resolving]
  - Meningitis tuberculous [Recovering/Resolving]
  - Colon cancer [Unknown]
  - Systemic lupus erythematosus [Recovered/Resolved]

NARRATIVE: CASE EVENT DATE: 201711
